FAERS Safety Report 24292592 (Version 1)
Quarter: 2024Q3

REPORT INFORMATION
  Report Type: Spontaneous
  Country: US (occurrence: None)
  Receive Date: 20240906
  Receipt Date: 20240906
  Transmission Date: 20241017
  Serious: No
  Sender: ASTRAZENECA
  Company Number: 2024A182529

PATIENT

DRUGS (1)
  1. KOSELUGO [Suspect]
     Active Substance: SELUMETINIB
     Route: 048

REACTIONS (5)
  - Neurodermatitis [Unknown]
  - Adverse event [Unknown]
  - Drug intolerance [Unknown]
  - Skin disorder [Unknown]
  - Eye disorder [Unknown]
